FAERS Safety Report 8016660-2 (Version None)
Quarter: 2012Q1

REPORT INFORMATION
  Report Type: 
  Country: None (occurrence: None)
  Receive Date: 20120102
  Receipt Date: 20111221
  Transmission Date: 20120608
  Serious: Yes (Hospitalization)
  Sender: FDA-Public Use
  Company Number: ES-BRISTOL-MYERS SQUIBB COMPANY-16317398

PATIENT
  Age: 67 Year
  Sex: Male

DRUGS (5)
  1. CHLORTHALIDONE [Concomitant]
  2. SIMVASTATIN [Concomitant]
     Indication: DYSLIPIDAEMIA
  3. METFORMIN HCL [Suspect]
     Indication: TYPE 2 DIABETES MELLITUS
  4. ENALAPRIL MALEATE [Suspect]
     Indication: HYPERTENSION
  5. AMLODIPINE [Concomitant]
     Indication: HYPERTENSION

REACTIONS (1)
  - ANGIOEDEMA [None]
